FAERS Safety Report 9689390 (Version 3)
Quarter: 2013Q4

REPORT INFORMATION
  Report Type: Report from Study
  Country: PR (occurrence: PR)
  Receive Date: 20131114
  Receipt Date: 20131219
  Transmission Date: 20140711
  Serious: Yes (Disabling, Other)
  Sender: FDA-Public Use
  Company Number: PR-ABBVIE-12P-131-0997402-00

PATIENT
  Age: 45 Year
  Sex: Male
  Weight: 81.27 kg

DRUGS (6)
  1. HUMIRA [Suspect]
     Indication: RHEUMATOID ARTHRITIS
     Route: 058
     Dates: start: 2012
  2. HUMIRA [Suspect]
     Route: 058
     Dates: start: 20131204
  3. METHOTREXATE [Concomitant]
     Indication: RHEUMATOID ARTHRITIS
     Dosage: 6 TABLETS WEEKLY
     Route: 048
     Dates: start: 2007
  4. HUMULIN N [Concomitant]
     Indication: DIABETES MELLITUS
     Route: 058
     Dates: start: 1995, end: 2012
  5. LANTUSS [Concomitant]
     Indication: DIABETES MELLITUS
     Route: 058
     Dates: start: 2012
  6. UNKNOWN MEDICATION [Concomitant]
     Indication: DIABETES MELLITUS
     Route: 048
     Dates: start: 201310

REACTIONS (6)
  - Cataract [Not Recovered/Not Resolved]
  - Diabetic retinopathy [Unknown]
  - Nasopharyngitis [Recovered/Resolved]
  - Uveitis [Unknown]
  - Nasopharyngitis [Not Recovered/Not Resolved]
  - Visual acuity reduced [Not Recovered/Not Resolved]
